FAERS Safety Report 9862072 (Version 1)
Quarter: 2014Q1

REPORT INFORMATION
  Report Type: Spontaneous
  Country: US (occurrence: US)
  Receive Date: 20140203
  Receipt Date: 20140203
  Transmission Date: 20141002
  Serious: No
  Sender: FDA-Public Use
  Company Number: US-OPTIMER-20130312

PATIENT
  Sex: 0

DRUGS (7)
  1. DIFICID [Suspect]
     Indication: CLOSTRIDIUM DIFFICILE COLITIS
     Dosage: 200 MG, BID
     Route: 048
     Dates: start: 201307
  2. NEXIUM [Concomitant]
  3. TRAMADOL [Concomitant]
  4. LEVOTHYROXINE [Concomitant]
  5. ALLEGRA [Concomitant]
  6. ZOFRAN [Concomitant]
  7. KLOR-CON [Concomitant]

REACTIONS (3)
  - Diarrhoea [Not Recovered/Not Resolved]
  - Nausea [Not Recovered/Not Resolved]
  - Pruritus [Not Recovered/Not Resolved]
